FAERS Safety Report 11501876 (Version 2)
Quarter: 2015Q3

REPORT INFORMATION
  Report Type: Report from Study
  Country: US (occurrence: US)
  Receive Date: 20150914
  Receipt Date: 20150928
  Transmission Date: 20151125
  Serious: Yes (Other)
  Sender: FDA-Public Use
  Company Number: US-GILEAD-2015-0171719

PATIENT
  Age: 48 Year
  Sex: Female

DRUGS (2)
  1. AMBRISENTAN [Suspect]
     Active Substance: AMBRISENTAN
     Indication: PULMONARY HYPERTENSION
     Dosage: 5 MG, UNK
     Route: 065
     Dates: start: 20090309
  2. AMBRISENTAN [Suspect]
     Active Substance: AMBRISENTAN
     Indication: ATRIOVENTRICULAR SEPTAL DEFECT

REACTIONS (2)
  - Cardiac failure congestive [Unknown]
  - Atrioventricular septal defect [Unknown]
